FAERS Safety Report 20590331 (Version 1)
Quarter: 2022Q1

REPORT INFORMATION
  Report Type: Spontaneous
  Country: US (occurrence: None)
  Receive Date: 20220313
  Receipt Date: 20220313
  Transmission Date: 20220424
  Serious: Yes (Life-Threatening, Hospitalization, Disabling)
  Sender: FDA-Public Use
  Company Number: None

PATIENT
  Age: 34 Year
  Sex: Female
  Weight: 72.9 kg

DRUGS (18)
  1. XULANE [Suspect]
     Active Substance: ETHINYL ESTRADIOL\NORELGESTROMIN
     Indication: Contraception
     Dosage: FREQUENCY : WEEKLY;?
     Route: 062
     Dates: start: 20151120, end: 20190618
  2. QULIPTA [Concomitant]
     Active Substance: ATOGEPANT
  3. ubrevly [Concomitant]
  4. NURTEC ODT [Concomitant]
     Active Substance: RIMEGEPANT SULFATE
  5. floricet [Concomitant]
  6. PROPRANOLOL HYDROCHLORIDE [Concomitant]
     Active Substance: PROPRANOLOL HYDROCHLORIDE
  7. VERAPAMIL [Concomitant]
     Active Substance: VERAPAMIL HYDROCHLORIDE
  8. amiptriptyline [Concomitant]
  9. CARBAMAZEPINE [Concomitant]
     Active Substance: CARBAMAZEPINE
  10. CLARITIN [Concomitant]
     Active Substance: LORATADINE
  11. TYLENOL [Concomitant]
     Active Substance: ACETAMINOPHEN
  12. excederine migriane [Concomitant]
  13. ASPIRIN [Concomitant]
     Active Substance: ASPIRIN
  14. DIMETHYL SULFONE [Concomitant]
     Active Substance: DIMETHYL SULFONE
  15. VITAMIN C [Concomitant]
     Active Substance: ASCORBIC ACID
  16. nootropics [Concomitant]
  17. PEPPERMINT OIL [Concomitant]
     Active Substance: PEPPERMINT OIL
  18. energy supplements [Concomitant]

REACTIONS (13)
  - Cerebrovascular accident [None]
  - Migraine [None]
  - Carotid artery occlusion [None]
  - Carotid artery stenosis [None]
  - Hypertensive crisis [None]
  - Astigmatism [None]
  - Brain injury [None]
  - Memory impairment [None]
  - Disturbance in attention [None]
  - Cognitive disorder [None]
  - Tinnitus [None]
  - Vision blurred [None]
  - Hypoacusis [None]
